FAERS Safety Report 7944015-5 (Version None)
Quarter: 2011Q4

REPORT INFORMATION
  Report Type: 
  Country: None (occurrence: None)
  Receive Date: 20111128
  Receipt Date: 20110929
  Transmission Date: 20120403
  Serious: Yes (Death, Hospitalization, Other)
  Sender: FDA-Public Use
  Company Number: JP-ROCHE-800183

PATIENT
  Sex: Male

DRUGS (50)
  1. PREDNISOLONE [Suspect]
     Indication: CASTLEMAN'S DISEASE
     Dosage: DRUG: PREDONINE (PREDNISOLONE)
     Route: 048
     Dates: start: 20100122, end: 20100212
  2. PREDNISOLONE [Suspect]
     Dosage: 25 MG IN THE MORNING AND 20 MG IN DAY TIME
     Route: 048
     Dates: start: 20100424, end: 20100502
  3. SOLU-MEDROL [Concomitant]
     Route: 042
     Dates: start: 20100611, end: 20100613
  4. RITUXIMAB [Concomitant]
     Indication: CASTLEMAN'S DISEASE
     Dosage: THERAPY DATE: 17 JUN 2010.
     Route: 042
  5. FUROSEMIDE [Concomitant]
     Route: 042
     Dates: start: 20100608, end: 20100627
  6. SOLDACTONE [Concomitant]
     Route: 042
     Dates: start: 20100408, end: 20100414
  7. LENDORMIN [Concomitant]
     Route: 048
     Dates: start: 20100210, end: 20100626
  8. METFORMIN HCL [Concomitant]
     Route: 048
     Dates: start: 20100308, end: 20100601
  9. SUNRYTHM [Concomitant]
     Route: 048
     Dates: start: 20100326, end: 20100512
  10. PREDNISOLONE [Suspect]
     Route: 048
     Dates: start: 20100318, end: 20100322
  11. PREDNISOLONE [Suspect]
     Route: 048
     Dates: start: 20100406, end: 20100409
  12. PREDNISOLONE [Suspect]
     Dosage: 28 AUG - 05 SEP 2010
     Route: 042
  13. PREDNISOLONE [Suspect]
     Indication: CASTLEMAN'S DISEASE
     Dosage: DRUG: ENDOXAN (CYCLOPHOSPHAMIDE HYDRATE) 09 JUN 2010
     Route: 042
  14. NOVO-HEPARIN [Concomitant]
     Route: 042
     Dates: start: 20100326, end: 20100410
  15. RABEPRAZOLE SODIUM [Concomitant]
     Route: 054
     Dates: start: 20100122, end: 20100627
  16. LOXONIN [Concomitant]
     Dosage: FORM: PER-ORAL AGENT
     Route: 048
     Dates: start: 20100119, end: 20100408
  17. VERAPAMIL HCL [Concomitant]
     Route: 042
     Dates: start: 20100614, end: 20100625
  18. ACTEMRA [Suspect]
     Route: 041
     Dates: start: 20100507, end: 20100507
  19. PREDNISOLONE [Suspect]
     Route: 048
     Dates: start: 20100304, end: 20100310
  20. PREDNISOLONE [Suspect]
     Route: 048
     Dates: start: 20100503, end: 20100511
  21. PREDNISOLONE [Suspect]
     Dosage: 07-27 AUG 2010
     Route: 042
  22. ACTEMRA [Suspect]
     Route: 041
     Dates: start: 20100521, end: 20100604
  23. PREDNISOLONE [Suspect]
     Route: 048
     Dates: start: 20100218, end: 20100224
  24. PREDNISOLONE [Suspect]
     Route: 048
     Dates: start: 20100225, end: 20100303
  25. PREDNISOLONE [Suspect]
     Dosage: 20 MG IN THE MORNING AND 10 MG IN DAY TIME
     Route: 048
     Dates: start: 20100311, end: 20100317
  26. PREDNISOLONE [Suspect]
     Route: 048
     Dates: start: 20100415, end: 20100423
  27. FUROSEMIDE [Concomitant]
     Route: 042
     Dates: start: 20100415, end: 20100419
  28. SOLDACTONE [Concomitant]
     Route: 042
     Dates: start: 20100415, end: 20100419
  29. ITRACONAZOLE [Concomitant]
     Dosage: FORM: PER-ORAL AGENT
     Route: 048
     Dates: start: 20100324, end: 20100414
  30. PREDNISOLONE [Suspect]
     Route: 048
     Dates: start: 20100323, end: 20100331
  31. PREDNISOLONE [Suspect]
     Route: 048
     Dates: start: 20100608, end: 20100610
  32. PREDNISOLONE [Suspect]
     Dosage: 26 JUNE - 23 JULY 2010
     Route: 042
  33. VINCRISTINE [Suspect]
     Indication: CASTLEMAN'S DISEASE
     Dosage: ONCOVIN (VINCRISTIN SULFATE) 9 JUN 2010
     Route: 042
  34. VERAPAMIL HCL [Concomitant]
     Route: 048
     Dates: start: 20100327, end: 20100616
  35. DISOPYRAMIDE PHOSPHATE [Concomitant]
     Route: 048
     Dates: start: 20100614, end: 20100628
  36. ACTEMRA [Suspect]
     Indication: CASTLEMAN'S DISEASE
     Route: 041
     Dates: start: 20100408, end: 20100422
  37. PREDNISOLONE [Suspect]
     Route: 048
     Dates: start: 20100410, end: 20100414
  38. PREDNISOLONE [Suspect]
     Dosage: 20 MG IN THE MORNING AND 15 MG IN DAY TIME
     Route: 048
     Dates: start: 20100512, end: 20100525
  39. PREDNISOLONE [Suspect]
     Route: 048
     Dates: start: 20100526, end: 20100607
  40. PREDNISOLONE [Suspect]
     Dosage: 14-25 JUNE 2010
     Route: 042
  41. PREDNISOLONE [Suspect]
     Dosage: 50 MG IN MORNING AND 40 MG IN DAY TIME 24 JUL - 06 AUG 2010
     Route: 042
  42. VINCRISTINE [Suspect]
     Dosage: 23 JUN 2010
     Route: 042
  43. FUROSEMIDE [Concomitant]
     Route: 042
     Dates: start: 20100604, end: 20100607
  44. FUROSEMIDE [Concomitant]
     Route: 042
     Dates: start: 20100706, end: 20100904
  45. PREDNISOLONE [Suspect]
     Route: 048
     Dates: start: 20100213, end: 20100217
  46. PREDNISOLONE [Suspect]
     Route: 048
     Dates: start: 20100401, end: 20100405
  47. CYCLOPHOSPHAMIDE [Suspect]
     Dosage: 23 JUN 2010
     Route: 042
  48. FUROSEMIDE [Concomitant]
     Route: 042
     Dates: start: 20100408, end: 20100414
  49. ALBUMIN (HUMAN) [Concomitant]
     Dosage: DOSAGE IS UNCERTAIN
     Route: 042
     Dates: start: 20100414, end: 20100416
  50. SULFAMETHOXAZOLE AND TRIMETHOPRIM [Concomitant]
     Route: 048
     Dates: start: 20100204, end: 20100614

REACTIONS (12)
  - CASTLEMAN'S DISEASE [None]
  - CONSTIPATION [None]
  - PNEUMONIA [None]
  - CYTOMEGALOVIRUS INFECTION [None]
  - IRON DEFICIENCY ANAEMIA [None]
  - HEPATIC FUNCTION ABNORMAL [None]
  - HYPOFIBRINOGENAEMIA [None]
  - ASPERGILLOSIS [None]
  - DISSEMINATED INTRAVASCULAR COAGULATION [None]
  - GASTROINTESTINAL HAEMORRHAGE [None]
  - URINARY TRACT INFECTION [None]
  - NEUTROPENIA [None]
